FAERS Safety Report 15961993 (Version 1)
Quarter: 2019Q1

REPORT INFORMATION
  Report Type: Report from Study
  Country: IT (occurrence: IT)
  Receive Date: 20190214
  Receipt Date: 20190214
  Transmission Date: 20190417
  Serious: Yes (Death)
  Sender: FDA-Public Use
  Company Number: IT-AMREGENT-20190274

PATIENT
  Age: 64 Year
  Sex: Male

DRUGS (7)
  1. FERINJECT [Suspect]
     Active Substance: FERRIC CARBOXYMALTOSE
     Dosage: 10 ML (X 2 KITS)
     Route: 040
     Dates: start: 20180423, end: 20180423
  2. CANRENONE [Concomitant]
     Active Substance: CANRENONE
     Dosage: 50 MG , 1 IN 1 D
     Route: 048
     Dates: start: 2018
  3. ASA [Concomitant]
     Active Substance: ASPIRIN
     Dosage: 100 MG, 1 IN 1 D
     Route: 048
  4. WARFARIN [Concomitant]
     Active Substance: WARFARIN
     Dosage: MG, 1 IN 1D
     Route: 048
  5. PANTOPRAZOLE [Concomitant]
     Active Substance: PANTOPRAZOLE
     Dosage: 20 MG , 1 IN 1 D
     Route: 048
  6. BISOPROLOL [Concomitant]
     Active Substance: BISOPROLOL
     Dosage: 7.5 MG  (3.75 MG, 2 IN 1 D)
     Route: 048
     Dates: start: 2017
  7. SALMETEROL FLUTICASONE [Concomitant]
     Dosage: 1 PUFF (1 OTHER, 2 IN 1 D)
     Route: 065

REACTIONS (1)
  - Road traffic accident [Fatal]

NARRATIVE: CASE EVENT DATE: 20190104
